FAERS Safety Report 10174530 (Version 2)
Quarter: 2014Q2

REPORT INFORMATION
  Report Type: Spontaneous
  Country: US (occurrence: US)
  Receive Date: 20140515
  Receipt Date: 20140515
  Transmission Date: 20141212
  Serious: Yes (Hospitalization, Disabling, Other)
  Sender: FDA-Public Use
  Company Number: US-009507513-1203USA02337

PATIENT
  Sex: Female
  Weight: 77.98 kg

DRUGS (5)
  1. FOSAMAX [Suspect]
     Dosage: UNK
     Route: 048
     Dates: start: 1997, end: 2009
  2. FOSAMAX [Suspect]
     Dosage: 70 MG, QW
     Route: 048
  3. FOSAMAX [Suspect]
     Dosage: UNK
     Route: 048
     Dates: start: 1997, end: 2009
  4. ALENDRONATE SODIUM [Suspect]
     Dosage: 70 MG, UNK
     Route: 048
     Dates: start: 20080403, end: 20100122
  5. ACTONEL [Suspect]
     Dates: start: 1997, end: 2009

REACTIONS (20)
  - Femur fracture [Recovered/Resolved]
  - Intramedullary rod insertion [Recovered/Resolved]
  - Humerus fracture [Recovered/Resolved]
  - Haemorrhagic anaemia [Unknown]
  - Osteopenia [Unknown]
  - Osteoporosis [Unknown]
  - Dyslipidaemia [Unknown]
  - Thyroid cyst [Unknown]
  - Hypertension [Unknown]
  - Hyperlipidaemia [Unknown]
  - Arthroscopy [Unknown]
  - Haemorrhoid operation [Unknown]
  - Bladder repair [Unknown]
  - Appendicectomy [Unknown]
  - Hysterectomy [Unknown]
  - Thrombosis [Unknown]
  - Phlebitis [Unknown]
  - Vitamin D deficiency [Unknown]
  - Hypercalcaemia [Unknown]
  - Restless legs syndrome [Unknown]
